FAERS Safety Report 9010617 (Version 3)
Quarter: 2013Q1

REPORT INFORMATION
  Report Type: Spontaneous
  Country: US (occurrence: US)
  Receive Date: 20130109
  Receipt Date: 20130211
  Transmission Date: 20140127
  Serious: Yes (Hospitalization)
  Sender: FDA-Public Use
  Company Number: US-BAXTER-2013BAX000045

PATIENT
  Sex: Female

DRUGS (1)
  1. DIANEAL LOW CALCIUM [Suspect]
     Indication: PERITONEAL DIALYSIS
     Route: 033

REACTIONS (5)
  - Influenza [Unknown]
  - Peritoneal perforation [Recovering/Resolving]
  - Gastrointestinal oedema [Recovering/Resolving]
  - Hernia [Unknown]
  - Intestinal obstruction [Unknown]
